FAERS Safety Report 8435940-X (Version None)
Quarter: 2012Q2

REPORT INFORMATION
  Report Type: 
  Country: None (occurrence: None)
  Receive Date: 20120614
  Receipt Date: 20120611
  Transmission Date: 20120825
  Serious: Yes (Hospitalization)
  Sender: FDA-Public Use
  Company Number: US-ROCHE-1058793

PATIENT
  Sex: Male
  Weight: 170.1 kg

DRUGS (82)
  1. FLUOROURACIL [Suspect]
     Indication: COLORECTAL CANCER METASTATIC
     Dosage: BOLUS, LAST DOSE PRIOR TO ONSET OF SAE WAS  13/MAR/2012
     Dates: start: 20111004
  2. AUGMENTIN '125' [Concomitant]
     Route: 048
     Dates: start: 20120228, end: 20120306
  3. CEFEPIME [Concomitant]
     Route: 042
     Dates: start: 20120324, end: 20120327
  4. TEMAZEPAM [Concomitant]
     Route: 048
     Dates: start: 20120323, end: 20120330
  5. HYDRALAZINE HCL [Concomitant]
     Route: 048
     Dates: start: 20120416, end: 20120419
  6. SOLU-MEDROL [Concomitant]
     Route: 042
     Dates: start: 20120416, end: 20120416
  7. NARCAN [Concomitant]
     Route: 042
     Dates: start: 20120326, end: 20120330
  8. FLOMAX [Concomitant]
     Route: 048
     Dates: start: 20120326, end: 20120327
  9. FLOMAX [Concomitant]
     Route: 048
     Dates: start: 20120327, end: 20120413
  10. FLOMAX [Concomitant]
     Route: 048
     Dates: start: 20120416, end: 20120419
  11. OXYCODONE/ACETAMINOPHEN [Concomitant]
     Route: 048
     Dates: start: 20120327, end: 20120413
  12. BENICAR [Concomitant]
     Route: 048
     Dates: start: 20120331, end: 20120413
  13. LOMOTIL [Concomitant]
     Dates: start: 20111003
  14. DEXAMETHASONE [Concomitant]
     Route: 042
     Dates: start: 20111004
  15. AVASTIN [Suspect]
     Indication: COLORECTAL CANCER METASTATIC
     Dosage: DATE OF MOST RECENT CYCLE PRIOR TO ONSET:13/MAR/2012
     Dates: start: 20111004
  16. FLUOROURACIL [Suspect]
     Dosage: INFUSION DOSE
     Dates: start: 20111004
  17. ATARAX [Concomitant]
     Route: 048
     Dates: start: 20120207
  18. CARAFATE [Concomitant]
     Route: 048
     Dates: start: 20120308
  19. DECADRON [Concomitant]
     Route: 048
     Dates: start: 20120324, end: 20120324
  20. COZAAR [Concomitant]
     Route: 048
     Dates: start: 20120324, end: 20120330
  21. TRAMADOL HCL [Concomitant]
     Route: 048
     Dates: start: 20120330, end: 20120413
  22. ONDANSETRON [Concomitant]
     Route: 048
     Dates: start: 20120323, end: 20120330
  23. PREDNISONE TAB [Concomitant]
     Route: 048
     Dates: start: 20120418, end: 20120418
  24. MG SULFATE [Concomitant]
     Route: 042
     Dates: start: 20120324, end: 20120324
  25. AMBIEN [Concomitant]
     Dates: start: 20120330, end: 20120413
  26. TRAMADOL HCL [Concomitant]
     Dates: start: 20120416, end: 20120419
  27. AMLODIPINE [Concomitant]
     Route: 048
     Dates: start: 20100722
  28. CITALOPRAM [Concomitant]
     Route: 048
     Dates: start: 20090101
  29. DEXAMETHASONE [Concomitant]
     Dates: start: 20101004, end: 20120331
  30. EMEND [Concomitant]
     Dates: start: 20111129
  31. PEPCID [Concomitant]
     Route: 048
     Dates: start: 20120324, end: 20120330
  32. MICONAZOLE [Concomitant]
     Dates: start: 20120417, end: 20120419
  33. MORPHINE [Concomitant]
     Dates: start: 20120324, end: 20120327
  34. PROTONIX [Concomitant]
     Route: 048
     Dates: start: 20120330, end: 20120413
  35. PERCOCET [Concomitant]
     Dates: start: 20120416, end: 20120419
  36. INDOMETHACIN [Concomitant]
     Dates: start: 20080101
  37. ALOXI [Concomitant]
     Dates: start: 20111004
  38. LEUCOVORIN CALCIUM [Suspect]
     Indication: COLORECTAL CANCER METASTATIC
     Dosage: LAST DOSE PRIOR TO ONSET OF SAE WAS  13/MAR/2012
     Dates: start: 20111004
  39. ONDANSETRON [Concomitant]
     Route: 042
     Dates: start: 20120323, end: 20120323
  40. ISORDIL [Concomitant]
     Route: 048
     Dates: start: 20120324, end: 20120324
  41. ACETAMINOPHEN [Concomitant]
     Route: 048
     Dates: start: 20120323, end: 20120330
  42. ACETAMINOPHEN [Concomitant]
     Dates: start: 20120416, end: 20120419
  43. ROCEPHIN [Concomitant]
     Route: 042
     Dates: start: 20120323, end: 20120323
  44. HYDROXYZINE [Concomitant]
     Route: 048
     Dates: start: 20120416, end: 20120419
  45. DIAZEPAM [Concomitant]
     Route: 048
     Dates: start: 20120329, end: 20120329
  46. DIOVAN [Concomitant]
     Dates: start: 20110303
  47. LEVOTHYROXINE SODIUM [Concomitant]
     Dates: start: 20010101, end: 20120227
  48. COMPAZINE [Concomitant]
     Route: 023
     Dates: start: 20111213
  49. LEVAQUIN [Concomitant]
     Dates: start: 20120105
  50. VANCOMYCIN [Concomitant]
     Route: 042
     Dates: start: 20120324, end: 20120326
  51. PROCHLORPERAZINE [Concomitant]
     Route: 048
     Dates: start: 20120323, end: 20120330
  52. IMODIUM [Concomitant]
     Route: 048
     Dates: start: 20120323, end: 20120330
  53. SOLU-MEDROL [Concomitant]
     Route: 011
     Dates: start: 20120407, end: 20120407
  54. IMODIUM [Concomitant]
     Route: 048
     Dates: start: 20120418, end: 20120419
  55. PERCODAN (UNITED STATES) [Concomitant]
     Route: 048
     Dates: start: 20120401, end: 20120413
  56. AMBIEN [Concomitant]
     Route: 048
     Dates: start: 20120416, end: 20120419
  57. HYDRALAZINE HYDROCHLORIDE [Concomitant]
     Route: 048
     Dates: start: 20090101
  58. ALPRAZOLAM [Concomitant]
     Route: 048
     Dates: start: 20110901
  59. AUGMENTIN '125' [Concomitant]
     Route: 048
     Dates: start: 20120217, end: 20120223
  60. LEVOTHYROXINE SODIUM [Concomitant]
     Route: 048
     Dates: start: 20120228
  61. LOVENOX [Concomitant]
     Route: 058
     Dates: start: 20120324, end: 20120329
  62. OLMESARTAN MEDOXOMIL [Concomitant]
     Route: 048
     Dates: start: 20120324, end: 20120324
  63. HYDROCODONE [Concomitant]
     Route: 048
     Dates: start: 20120323, end: 20120326
  64. PREDNISONE TAB [Concomitant]
     Dates: start: 20120327, end: 20120413
  65. LIDOCAINE [Concomitant]
     Route: 042
     Dates: start: 20120324, end: 20120324
  66. CYCLOBENZAPRINE [Concomitant]
     Route: 048
     Dates: start: 20120324, end: 20120413
  67. COZAAR [Concomitant]
     Dates: start: 20120417, end: 20120419
  68. PNEUMOVAX 23 [Concomitant]
     Dates: start: 20120325, end: 20120325
  69. LASIX [Concomitant]
     Dates: start: 20090101, end: 20120207
  70. MAGNESIUM [Concomitant]
     Dosage: 2 MG
     Dates: start: 20111004
  71. FAMOTIDINE [Concomitant]
  72. OXALIPLATIN [Suspect]
     Indication: COLORECTAL CANCER METASTATIC
     Dosage: LAST DOSE PRIOR TO ONSET OF SAE WAS  13/MAR/2012
     Dates: start: 20111004
  73. DILAUDID [Concomitant]
     Route: 042
     Dates: start: 20120207, end: 20120207
  74. PROCHLORPERAZINE [Concomitant]
     Dates: start: 20120323, end: 20120330
  75. TRAMADOL HCL [Concomitant]
     Route: 048
     Dates: start: 20120323, end: 20120326
  76. LEVAQUIN [Concomitant]
     Route: 048
     Dates: start: 20120420
  77. MORPHINE [Concomitant]
     Route: 042
     Dates: start: 20120323, end: 20120323
  78. HYDROXYZINE [Concomitant]
     Route: 048
     Dates: start: 20120404, end: 20120413
  79. IMDUR [Concomitant]
     Dates: start: 20100101
  80. LABETALOL HYDROCHLORIDE [Concomitant]
     Dates: start: 20090101
  81. ZOFRAN [Concomitant]
     Route: 049
     Dates: start: 20111213
  82. LISINOPRIL [Concomitant]

REACTIONS (1)
  - POLYARTHRITIS [None]
